FAERS Safety Report 8273127-4 (Version None)
Quarter: 2012Q2

REPORT INFORMATION
  Report Type: 
  Country: None (occurrence: None)
  Receive Date: 20120411
  Receipt Date: 20120403
  Transmission Date: 20120825
  Serious: Yes (Hospitalization, Other)
  Sender: FDA-Public Use
  Company Number: US-JNJFOC-20120402484

PATIENT
  Age: 81 Year
  Sex: Male

DRUGS (2)
  1. HEPARIN [Suspect]
     Indication: ANGIOPLASTY
     Route: 065
  2. ABCIXIMAB [Suspect]
     Indication: ANGIOPLASTY
     Route: 042

REACTIONS (3)
  - HAEMOGLOBIN DECREASED [None]
  - DISSEMINATED INTRAVASCULAR COAGULATION [None]
  - THROMBOCYTOPENIA [None]
